FAERS Safety Report 11377917 (Version 1)
Quarter: 2015Q3

REPORT INFORMATION
  Report Type: Spontaneous
  Country: US (occurrence: US)
  Receive Date: 20150811
  Receipt Date: 20150811
  Transmission Date: 20151125
  Serious: No
  Sender: FDA-Public Use
  Company Number: US-ELI_LILLY_AND_COMPANY-US200911003857

PATIENT
  Age: 56 Year
  Sex: Female

DRUGS (2)
  1. PRANDIN [Concomitant]
     Active Substance: REPAGLINIDE
     Dosage: 3 MG, DAILY (1/D)
     Route: 048
  2. HUMULIN N [Suspect]
     Active Substance: INSULIN HUMAN
     Dosage: 25 U, EACH EVENING
     Dates: start: 2006

REACTIONS (2)
  - Skin atrophy [Unknown]
  - Poor quality drug administered [Recovered/Resolved]

NARRATIVE: CASE EVENT DATE: 200906
